FAERS Safety Report 18573105 (Version 1)
Quarter: 2020Q4

REPORT INFORMATION
  Report Type: Spontaneous
  Country: US (occurrence: US)
  Receive Date: 20201203
  Receipt Date: 20201203
  Transmission Date: 20210114
  Serious: Yes (Other)
  Sender: FDA-Public Use
  Company Number: US-SUN PHARMACEUTICAL INDUSTRIES LTD-2020R1-269485

PATIENT
  Age: 74 Year
  Sex: Male
  Weight: 75 kg

DRUGS (9)
  1. MEMANTINE. [Suspect]
     Active Substance: MEMANTINE
     Indication: CRANIOCEREBRAL INJURY
     Dosage: 5 MILLIGRAM, DAILY
     Route: 065
  2. DONEPEZIL. [Suspect]
     Active Substance: DONEPEZIL
     Indication: CRANIOCEREBRAL INJURY
     Dosage: 10 MILLIGRAM, QD
     Route: 065
  3. DIVALPROEX SODIUM. [Suspect]
     Active Substance: DIVALPROEX SODIUM
     Indication: MIGRAINE PROPHYLAXIS
     Dosage: 250 MILLIGRAM, BID
  4. VENLAFAXINE [Suspect]
     Active Substance: VENLAFAXINE HYDROCHLORIDE
     Indication: CRANIOCEREBRAL INJURY
     Dosage: 37.5 MILLIGRAM, BID
     Route: 065
  5. MELATONIN [Suspect]
     Active Substance: MELATONIN
     Indication: CRANIOCEREBRAL INJURY
     Dosage: 3 MILLIGRAM, QD(ONCE/EVENING)
     Route: 065
  6. DIVALPROEX SODIUM. [Suspect]
     Active Substance: DIVALPROEX SODIUM
     Indication: CRANIOCEREBRAL INJURY
     Dosage: 125 MILLIGRAM, BID
     Route: 065
  7. TRAZODONE [Suspect]
     Active Substance: TRAZODONE HYDROCHLORIDE
     Indication: CRANIOCEREBRAL INJURY
     Dosage: 50 MILLIGRAM (AS NEEDED TAKEN 2-3 TIMES WEEKLY)
     Route: 065
  8. QUETIAPINE. [Suspect]
     Active Substance: QUETIAPINE
     Indication: CRANIOCEREBRAL INJURY
     Dosage: 25 MILLIGRAM, BID
     Route: 065
  9. DIVALPROEX SODIUM. [Suspect]
     Active Substance: DIVALPROEX SODIUM
     Indication: MOOD SWINGS

REACTIONS (1)
  - Serotonin syndrome [Unknown]
